FAERS Safety Report 10791863 (Version 1)
Quarter: 2015Q1

REPORT INFORMATION
  Report Type: Spontaneous
  Country: US (occurrence: US)
  Receive Date: 20150213
  Receipt Date: 20150213
  Transmission Date: 20150721
  Serious: Yes (Death)
  Sender: FDA-Public Use
  Company Number: US-CIPLA LTD.-2015US01015

PATIENT

DRUGS (7)
  1. I-METAIODOBENZYLGUANIDINE [Suspect]
     Active Substance: IOBENGUANE
     Indication: NEUROBLASTOMA
     Dosage: 666 MBQKG/1 OVER 120 MIN ON DAY 1 INFUSION
     Route: 042
  2. CEFIXIME. [Concomitant]
     Active Substance: CEFIXIME
     Indication: DIARRHOEA
     Dosage: FROM THE START OF THE PROTOCOL THERAPY TO DAY 6
     Route: 048
  3. PERIPHERAL BLOOD STEM CELLS [Suspect]
     Active Substance: STEM CELLS
     Indication: NEUROBLASTOMA
     Dosage: ON DAY 13
  4. VINCRISTINE [Suspect]
     Active Substance: VINCRISTINE
     Indication: NEUROBLASTOMA
     Dosage: 2MGM/2, BOLUS ON DAY 0
     Route: 042
  5. CEFPODOXIME [Concomitant]
     Active Substance: CEFPODOXIME
     Indication: DIARRHOEA
     Dosage: FROM THE START OF THE PROTOCOL THERAPY TO DAY 6
  6. IRINOTECAN [Suspect]
     Active Substance: IRINOTECAN
     Indication: NEUROBLASTOMA
     Dosage: 50 MGM/2 PER DOSE, OVER 60-90 MIN ON DAYS 0-4 INFUSION
     Route: 042
  7. I-METAIODOBENZYLGUANIDINE [Suspect]
     Active Substance: IOBENGUANE
     Dosage: UNK

REACTIONS (1)
  - Acute myeloid leukaemia [Fatal]
